FAERS Safety Report 5780557-9 (Version None)
Quarter: 2008Q2

REPORT INFORMATION
  Report Type: 
  Country: None (occurrence: None)
  Receive Date: 20080620
  Receipt Date: 20080612
  Transmission Date: 20081010
  Serious: Yes (Hospitalization, Other)
  Sender: FDA-Public Use
  Company Number: PHHY2008BR10836

PATIENT

DRUGS (13)
  1. FORASEQ [Suspect]
     Indication: ASTHMA
     Dosage: 12/400 UG
  2. CLONAZEPAM [Concomitant]
     Indication: INSOMNIA
     Dosage: 1/2 TABLET DAILY
  3. CLONAZEPAM [Concomitant]
     Dosage: 2 TABLET DAILY
  4. GLUCOCORTICOIDS [Concomitant]
     Indication: ASTHMA
     Dosage: UNK
  5. BAMIFIX [Concomitant]
     Indication: ASTHMA
     Dosage: 600 MG, QD
  6. BEROTEC [Concomitant]
     Indication: ASTHMA
     Dosage: UNK, QID
  7. ATROVENT [Concomitant]
     Indication: ASTHMA
     Dosage: UNK
  8. BISOLVON [Concomitant]
     Indication: ASTHMA
     Dosage: UNK
     Route: 048
  9. MONTELUKAST SODIUM [Concomitant]
     Indication: ASTHMA
     Dosage: UNK
     Route: 048
  10. METFORMIN [Concomitant]
     Indication: DIABETES MELLITUS
     Dosage: 850 MG, BID
     Route: 048
  11. OSCAL [Concomitant]
     Dosage: 500 MG, QD
     Route: 048
  12. DIOVAN [Concomitant]
     Indication: HYPERTENSION
     Dosage: 160 MG, QD
     Route: 048
  13. ANTIBIOTICS [Suspect]

REACTIONS (14)
  - CONSTIPATION [None]
  - DIARRHOEA [None]
  - DRY THROAT [None]
  - DYSGEUSIA [None]
  - DYSPHONIA [None]
  - FEELING COLD [None]
  - FLATULENCE [None]
  - INFLAMMATION [None]
  - INFLUENZA [None]
  - LUNG INFECTION [None]
  - NASOPHARYNGITIS [None]
  - PAIN [None]
  - PERITONSILLAR ABSCESS [None]
  - PYREXIA [None]
